FAERS Safety Report 16745007 (Version 1)
Quarter: 2019Q3

REPORT INFORMATION
  Report Type: Spontaneous
  Country: DE (occurrence: DE)
  Receive Date: 20190827
  Receipt Date: 20190827
  Transmission Date: 20191005
  Serious: Yes (Death, Life-Threatening)
  Sender: FDA-Public Use
  Company Number: DE-HIKMA PHARMACEUTICALS USA INC.-DE-H14001-19-46667

PATIENT
  Age: 8 Month
  Sex: Male
  Weight: 7.2 kg

DRUGS (12)
  1. VINCRISTIN [Suspect]
     Active Substance: VINCRISTINE
     Dosage: MIT NACL ECOBAG 17ML
     Route: 042
  2. FUROSEMIDE. [Concomitant]
     Active Substance: FUROSEMIDE
     Indication: PRODUCT USED FOR UNKNOWN INDICATION
     Route: 042
  3. VINCRISTIN [Suspect]
     Active Substance: VINCRISTINE
     Route: 042
  4. KEVATRIL [Concomitant]
     Active Substance: GRANISETRON HYDROCHLORIDE
     Indication: PRODUCT USED FOR UNKNOWN INDICATION
     Dosage: 0. MG/D I.V/P.O
     Route: 065
  5. VINCRISTIN [Suspect]
     Active Substance: VINCRISTINE
     Indication: PRODUCT USED FOR UNKNOWN INDICATION
     Dosage: MIT NACL ECOBAG 17ML
     Route: 042
  6. DOXORUBICIN [Suspect]
     Active Substance: DOXORUBICIN
     Indication: PRODUCT USED FOR UNKNOWN INDICATION
     Route: 042
  7. DOXORUBICIN [Suspect]
     Active Substance: DOXORUBICIN
     Dosage: 5.00 UHR UND 16.00 UHR
     Route: 042
  8. COTRIM [Concomitant]
     Active Substance: SULFAMETHOXAZOLE\TRIMETHOPRIM
     Indication: PRODUCT USED FOR UNKNOWN INDICATION
     Dosage: 2X20MG TMP
     Route: 065
  9. IFOSFAMIDA [Suspect]
     Active Substance: IFOSFAMIDE
     Dosage: MIT NACL FREEFLEX 50ML
     Route: 042
  10. DOXORUBICIN [Suspect]
     Active Substance: DOXORUBICIN
     Route: 042
  11. MESNA. [Concomitant]
     Active Substance: MESNA
     Indication: PRODUCT USED FOR UNKNOWN INDICATION
     Route: 042
  12. IFOSFAMIDA [Suspect]
     Active Substance: IFOSFAMIDE
     Indication: PRODUCT USED FOR UNKNOWN INDICATION
     Dosage: MIT NACL FREEFLEX 50ML
     Route: 042

REACTIONS (4)
  - Sepsis [Fatal]
  - Respiratory failure [Fatal]
  - Renal failure [Fatal]
  - Hypertension [Fatal]
